FAERS Safety Report 14654991 (Version 2)
Quarter: 2018Q2

REPORT INFORMATION
  Report Type: Spontaneous
  Country: GB (occurrence: GB)
  Receive Date: 20180319
  Receipt Date: 20180501
  Transmission Date: 20180711
  Serious: Yes (Death, Other)
  Sender: FDA-Public Use
  Company Number: GB-MYLANLABS-2018M1016180

PATIENT
  Age: 86 Year
  Sex: Female

DRUGS (5)
  1. ALLOPURINOL. [Interacting]
     Active Substance: ALLOPURINOL
     Indication: PRODUCT USED FOR UNKNOWN INDICATION
     Dosage: UNK
     Route: 065
  2. WARFARIN [Suspect]
     Active Substance: WARFARIN
     Indication: ANTICOAGULANT THERAPY
     Dosage: UNK
     Route: 065
  3. COLCHICINE. [Interacting]
     Active Substance: COLCHICINE
     Dosage: UNK
     Route: 065
  4. ALLOPURINOL. [Interacting]
     Active Substance: ALLOPURINOL
     Dosage: UNK
     Route: 065
  5. COLCHICINE. [Interacting]
     Active Substance: COLCHICINE
     Indication: PRODUCT USED FOR UNKNOWN INDICATION
     Dosage: UNK
     Route: 065

REACTIONS (3)
  - Drug interaction [Fatal]
  - Medication error [Unknown]
  - Cerebral haemorrhage [Fatal]
